FAERS Safety Report 8372798-1 (Version None)
Quarter: 2012Q2

REPORT INFORMATION
  Report Type: 
  Country: None (occurrence: None)
  Receive Date: 20120521
  Receipt Date: 20120510
  Transmission Date: 20120825
  Serious: Yes (Other)
  Sender: FDA-Public Use
  Company Number: SE-PFIZER INC-2012120141

PATIENT
  Age: 66 Year
  Sex: Male

DRUGS (1)
  1. CORDARONE [Suspect]
     Indication: PRODUCT USED FOR UNKNOWN INDICATION
     Dosage: UNK
     Dates: end: 20120305

REACTIONS (4)
  - PNEUMONIA [None]
  - PULMONARY OEDEMA [None]
  - PULMONARY FIBROSIS [None]
  - PULMONARY EMBOLISM [None]
